FAERS Safety Report 9978105 (Version 1)
Quarter: 2014Q1

REPORT INFORMATION
  Report Type: Spontaneous
  Country: US (occurrence: US)
  Receive Date: 20140306
  Receipt Date: 20140306
  Transmission Date: 20141002
  Serious: No
  Sender: FDA-Public Use
  Company Number: US-PFIZER INC-2014065225

PATIENT
  Age: 30 Year
  Sex: Female
  Weight: 68.03 kg

DRUGS (5)
  1. LYRICA [Suspect]
     Indication: ANXIETY
     Dosage: 50MG IN THE MORNING, 100MG IN AFTERNOON AND 50MG AT NIGHT), DAILY
     Dates: start: 2013
  2. LYRICA [Suspect]
     Indication: MOOD ALTERED
  3. XANAX [Concomitant]
     Indication: ANXIETY
     Dosage: 0.5 MG, 4X/DAY
  4. ADDERALL [Concomitant]
     Indication: ATTENTION DEFICIT/HYPERACTIVITY DISORDER
     Dosage: 10 MG, DAILY
  5. LATUDA [Concomitant]
     Indication: BIPOLAR DISORDER
     Dosage: 80 MG, DAILY

REACTIONS (3)
  - Off label use [Not Recovered/Not Resolved]
  - Hypoaesthesia oral [Not Recovered/Not Resolved]
  - Dysgeusia [Not Recovered/Not Resolved]
